FAERS Safety Report 12177118 (Version 1)
Quarter: 2016Q1

REPORT INFORMATION
  Report Type: Report from Study
  Country: IE (occurrence: IE)
  Receive Date: 20160314
  Receipt Date: 20160314
  Transmission Date: 20160526
  Serious: Yes (Other)
  Sender: FDA-Public Use
  Company Number: PHHO2014IE018658

PATIENT
  Age: 41 Year
  Sex: Female
  Weight: 73.8 kg

DRUGS (4)
  1. TRASTUZUMAB [Suspect]
     Active Substance: TRASTUZUMAB
     Indication: BREAST NEOPLASM
     Dosage: 462 MG, UNK
     Route: 042
     Dates: start: 20120413, end: 20130315
  2. TYKERB [Suspect]
     Active Substance: LAPATINIB DITOSYLATE
     Indication: BREAST NEOPLASM
     Dosage: 1000 MG, UNK
     Route: 048
     Dates: start: 20120413, end: 20120822
  3. DOCETAXEL. [Suspect]
     Active Substance: DOCETAXEL
     Indication: BREAST NEOPLASM
     Dosage: 128 MG, UNK
     Route: 042
     Dates: start: 20120413, end: 20120727
  4. CARBOPLATIN. [Suspect]
     Active Substance: CARBOPLATIN
     Indication: BREAST NEOPLASM
     Dosage: 810 UKN, UNK
     Route: 042
     Dates: start: 20120413, end: 20120727

REACTIONS (1)
  - Ejection fraction decreased [Recovered/Resolved]

NARRATIVE: CASE EVENT DATE: 20140415
